FAERS Safety Report 10094467 (Version 1)
Quarter: 2014Q2

REPORT INFORMATION
  Report Type: Spontaneous
  Country: US (occurrence: None)
  Receive Date: 20140421
  Receipt Date: 20140421
  Transmission Date: 20141212
  Serious: Yes (Disabling)
  Sender: FDA-Public Use
  Company Number: None

PATIENT
  Age: 80 Year
  Sex: Male
  Weight: 108.86 kg

DRUGS (1)
  1. XTANDI [Suspect]
     Indication: PROSTATE CANCER
     Dosage: 4 PILLS, FOUR TIMES DAILY, TAKEN BY MOUTH
     Route: 048
     Dates: start: 20140211, end: 20140418

REACTIONS (2)
  - Fatigue [None]
  - Asthenia [None]
